FAERS Safety Report 17772750 (Version 2)
Quarter: 2020Q2

REPORT INFORMATION
  Report Type: Spontaneous
  Country: FR (occurrence: FR)
  Receive Date: 20200512
  Receipt Date: 20200525
  Transmission Date: 20200714
  Serious: Yes (Life-Threatening, Hospitalization, Other)
  Sender: FDA-Public Use
  Company Number: FR-PFIZER INC-2020187436

PATIENT
  Age: 74 Year
  Sex: Female
  Weight: 57 kg

DRUGS (7)
  1. PROPRANOLOL [Interacting]
     Active Substance: PROPRANOLOL HYDROCHLORIDE
     Indication: MIGRAINE
     Dosage: 20 MG, EVERY 12 HOURS
     Route: 048
     Dates: end: 20200331
  2. OXYGEN. [Concomitant]
     Active Substance: OXYGEN
     Dosage: 1 L, EVERY 1 MINUTE
     Route: 055
  3. PARACETAMOL [Concomitant]
     Active Substance: ACETAMINOPHEN
     Dosage: UNK UNK, AS NEEDED
     Route: 048
  4. LAROXYL [Interacting]
     Active Substance: AMITRIPTYLINE HYDROCHLORIDE
     Indication: MIGRAINE
     Dosage: 15 DROP, 1X/DAY
     Route: 048
     Dates: end: 20200331
  5. PANTOPRAZOLE [Concomitant]
     Active Substance: PANTOPRAZOLE
     Dosage: 20 MG, 1X/DAY
     Route: 048
  6. ZITHROMAX [Suspect]
     Active Substance: AZITHROMYCIN DIHYDRATE
     Indication: CORONAVIRUS INFECTION
     Dosage: 500 MG
     Route: 048
     Dates: start: 20200331, end: 20200331
  7. PLAQUENIL [Interacting]
     Active Substance: HYDROXYCHLOROQUINE SULFATE
     Indication: CORONAVIRUS INFECTION
     Dosage: 400 MG, EVERY 12 HOURS
     Route: 048
     Dates: start: 20200331, end: 20200331

REACTIONS (5)
  - Drug interaction [Unknown]
  - Diarrhoea [Recovered/Resolved]
  - Electrocardiogram QT prolonged [Recovered/Resolved with Sequelae]
  - Product use in unapproved indication [Unknown]
  - Off label use [Unknown]

NARRATIVE: CASE EVENT DATE: 20200331
